FAERS Safety Report 20792938 (Version 13)
Quarter: 2023Q2

REPORT INFORMATION
  Report Type: Report from Study
  Country: CA (occurrence: CA)
  Receive Date: 20220506
  Receipt Date: 20230622
  Transmission Date: 20230721
  Serious: Yes (Hospitalization, Other)
  Sender: FDA-Public Use
  Company Number: CA-JNJFOC-20220431008

PATIENT
  Age: 46 Year
  Sex: Male
  Weight: 82 kg

DRUGS (3)
  1. REMICADE [Suspect]
     Active Substance: INFLIXIMAB
     Indication: Crohn^s disease
     Dosage: EXPIRY DATE: 31-AUG-2025
     Route: 042
     Dates: start: 20220405
  2. REMICADE [Suspect]
     Active Substance: INFLIXIMAB
     Dosage: DOSE INCREASED
     Route: 042
     Dates: start: 20220412
  3. REMICADE [Suspect]
     Active Substance: INFLIXIMAB
     Dosage: EXPIRY, 30-JUN-2025
     Route: 042
     Dates: start: 2022

REACTIONS (19)
  - Abscess [Not Recovered/Not Resolved]
  - Anal abscess [Unknown]
  - Infection [Unknown]
  - Hypersensitivity [Unknown]
  - Gastrointestinal inflammation [Unknown]
  - Anorectal swelling [Unknown]
  - Scrotal swelling [Unknown]
  - Scrotal pain [Unknown]
  - Proctalgia [Unknown]
  - Joint swelling [Not Recovered/Not Resolved]
  - Inflammation [Unknown]
  - Crohn^s disease [Unknown]
  - Abdominal pain [Unknown]
  - Fistula discharge [Unknown]
  - Acne [Unknown]
  - Anal inflammation [Unknown]
  - Staphylococcus test positive [Unknown]
  - Therapeutic product effect incomplete [Unknown]
  - Off label use [Unknown]

NARRATIVE: CASE EVENT DATE: 20220101
